FAERS Safety Report 4897836-X (Version None)
Quarter: 2006Q1

REPORT INFORMATION
  Report Type: 
  Country: None (occurrence: None)
  Receive Date: 20060201
  Receipt Date: 20060130
  Transmission Date: 20060701
  Serious: Yes (Hospitalization)
  Sender: FDA-Public Use
  Company Number: S05-USA-05172-01

PATIENT
  Age: 50 Year
  Sex: Female

DRUGS (12)
  1. WELLBUTRIN SR [Suspect]
     Indication: BIPOLAR DISORDER
     Dosage: 150MG PER DAY
     Route: 048
     Dates: start: 20051109
  2. CAMPRAL [Suspect]
     Indication: ALCOHOLISM
     Dosage: 666MG THREE TIMES PER DAY
     Route: 048
     Dates: start: 20051025, end: 20051205
  3. CELEXA [Suspect]
     Indication: BIPOLAR DISORDER
     Dosage: 20MG PER DAY
     Route: 048
     Dates: start: 20020901, end: 20051201
  4. RISPERDAL [Suspect]
     Indication: BIPOLAR DISORDER
     Dosage: 1MG AT NIGHT
     Route: 065
     Dates: start: 20051109
  5. NEURONTIN [Concomitant]
     Dosage: 800MG PER DAY
     Dates: start: 20021001
  6. DEPAKOTE [Concomitant]
     Dosage: 2000MG PER DAY
     Dates: start: 20050110
  7. GLYBURIDE [Concomitant]
  8. LACTULOSE [Concomitant]
  9. CORGARD [Concomitant]
  10. SYNTHROID [Concomitant]
  11. CALTRATE [Concomitant]
  12. MULTI-VITAMIN [Concomitant]

REACTIONS (3)
  - ANORGASMIA [None]
  - DRUG LEVEL DECREASED [None]
  - ENCEPHALOPATHY [None]
